FAERS Safety Report 23885200 (Version 2)
Quarter: 2024Q2

REPORT INFORMATION
  Report Type: Spontaneous
  Country: US (occurrence: US)
  Receive Date: 20240522
  Receipt Date: 20240624
  Transmission Date: 20240716
  Serious: No
  Sender: FDA-Public Use
  Company Number: US-PFIZER INC-202400171683

PATIENT
  Age: 14 Year
  Sex: Male
  Weight: 37.4 kg

DRUGS (3)
  1. GENOTROPIN [Suspect]
     Active Substance: SOMATROPIN
     Indication: Growth hormone deficiency
     Dosage: EVERY NIGHT
     Route: 058
     Dates: start: 2024
  2. GENOTROPIN [Suspect]
     Active Substance: SOMATROPIN
     Indication: Short stature
  3. ADDERALL [Concomitant]
     Active Substance: AMPHETAMINE ASPARTATE\AMPHETAMINE SULFATE\DEXTROAMPHETAMINE SACCHARATE\DEXTROAMPHETAMINE SULFATE
     Indication: Attention deficit hyperactivity disorder
     Dosage: 10 MG, 1X/DAY, EXTENDED RELEASE
     Route: 048

REACTIONS (4)
  - Device use error [Recovered/Resolved]
  - Device information output issue [Recovered/Resolved]
  - Device physical property issue [Recovered/Resolved]
  - Drug dose omission by device [Recovered/Resolved]
